FAERS Safety Report 25806446 (Version 1)
Quarter: 2025Q3

REPORT INFORMATION
  Report Type: Report from Study
  Country: CA (occurrence: CA)
  Receive Date: 20250916
  Receipt Date: 20250916
  Transmission Date: 20251021
  Serious: Yes (Other)
  Sender: ABBVIE
  Company Number: CA-ABBVIE-6456612

PATIENT
  Age: 81 Year
  Sex: Male
  Weight: 77.5 kg

DRUGS (1)
  1. SKYRIZI [Suspect]
     Active Substance: RISANKIZUMAB-RZAA
     Indication: Crohn^s disease
     Route: 058

REACTIONS (10)
  - Stoma creation [Unknown]
  - Abdominal pain [Unknown]
  - Arthralgia [Unknown]
  - Fall [Unknown]
  - Increased tendency to bruise [Unknown]
  - Sensitive skin [Unknown]
  - Injury [Unknown]
  - Haematoma [Recovered/Resolved]
  - Impaired work ability [Unknown]
  - Social problem [Unknown]

NARRATIVE: CASE EVENT DATE: 20250101
